FAERS Safety Report 25663443 (Version 3)
Quarter: 2025Q3

REPORT INFORMATION
  Report Type: Report from Study
  Country: US (occurrence: US)
  Receive Date: 20250811
  Receipt Date: 20250826
  Transmission Date: 20251021
  Serious: No
  Sender: ABBVIE
  Company Number: US-ABBVIE-6406493

PATIENT
  Age: 50 Year
  Sex: Female

DRUGS (1)
  1. SKYRIZI [Suspect]
     Active Substance: RISANKIZUMAB-RZAA
     Indication: Product used for unknown indication
     Route: 058
     Dates: start: 20250225

REACTIONS (2)
  - Alcohol rehabilitation [Unknown]
  - Drug rehabilitation [Unknown]

NARRATIVE: CASE EVENT DATE: 20250101
